FAERS Safety Report 18574952 (Version 1)
Quarter: 2020Q4

REPORT INFORMATION
  Report Type: Spontaneous
  Country: US (occurrence: US)
  Receive Date: 20201203
  Receipt Date: 20201203
  Transmission Date: 20210114
  Serious: Yes (Other)
  Sender: FDA-Public Use
  Company Number: US-TEVA-2020-US-1853672

PATIENT
  Age: 65 Year
  Sex: Female
  Weight: 49.9 kg

DRUGS (3)
  1. PREDNISONE ACTAVIS [Suspect]
     Active Substance: PREDNISONE
     Indication: ASTHMA
     Dosage: 20 MILLIGRAM DAILY;
     Route: 065
  2. PREDNISONE ACTAVIS [Suspect]
     Active Substance: PREDNISONE
     Dosage: 20 MILLIGRAM DAILY;
     Route: 065
     Dates: start: 202011
  3. PREDNISONE ACTAVIS [Suspect]
     Active Substance: PREDNISONE
     Dosage: 40 MILLIGRAM DAILY;
     Route: 065
     Dates: start: 202011, end: 20201106

REACTIONS (19)
  - Road traffic accident [Recovering/Resolving]
  - Crying [Recovering/Resolving]
  - Anger [Recovering/Resolving]
  - Disturbance in attention [Not Recovered/Not Resolved]
  - Aggression [Recovering/Resolving]
  - Dizziness [Recovering/Resolving]
  - Dyspnoea [Recovered/Resolved]
  - Therapeutic product effect incomplete [Unknown]
  - Weight decreased [Unknown]
  - Chest pain [Recovered/Resolved]
  - Panic disorder [Recovering/Resolving]
  - Mental disorder [Recovering/Resolving]
  - Product quality issue [Unknown]
  - Anxiety [Recovering/Resolving]
  - Thinking abnormal [Recovering/Resolving]
  - Chest discomfort [Recovered/Resolved]
  - Wheezing [Not Recovered/Not Resolved]
  - Suicidal ideation [Recovered/Resolved]
  - Feeding disorder [Unknown]

NARRATIVE: CASE EVENT DATE: 202011
